FAERS Safety Report 7515177-9 (Version None)
Quarter: 2011Q2

REPORT INFORMATION
  Report Type: 
  Country: None (occurrence: None)
  Receive Date: 20110601
  Receipt Date: 20100513
  Transmission Date: 20111010
  Serious: Yes (Other)
  Sender: FDA-Public Use
  Company Number: US-PFIZER INC-2010035981

PATIENT
  Age: 23 Year
  Sex: Male
  Weight: 75.283 kg

DRUGS (1)
  1. CHANTIX [Suspect]
     Indication: SMOKING CESSATION THERAPY
     Dosage: 0.5 MG, 2X/DAY
     Route: 048
     Dates: start: 20100204, end: 20100201

REACTIONS (4)
  - TREMOR [None]
  - PALPITATIONS [None]
  - ABNORMAL DREAMS [None]
  - SUICIDAL IDEATION [None]
